FAERS Safety Report 5012836-7 (Version None)
Quarter: 2006Q2

REPORT INFORMATION
  Report Type: 
  Country: None (occurrence: None)
  Receive Date: 20060530
  Receipt Date: 20060413
  Transmission Date: 20061013
  Serious: No
  Sender: FDA-Public Use
  Company Number: US-BRISTOL-MYERS SQUIBB COMPANY-13346036

PATIENT
  Age: 61 Year
  Sex: Male
  Weight: 58 kg

DRUGS (10)
  1. ERBITUX [Suspect]
     Indication: LUNG SQUAMOUS CELL CARCINOMA STAGE UNSPECIFIED
     Route: 042
     Dates: start: 20060412, end: 20060412
  2. ALOXI [Concomitant]
     Indication: PREMEDICATION
     Route: 042
     Dates: start: 20060412, end: 20060412
  3. DEXAMETHASONE TAB [Concomitant]
     Indication: PREMEDICATION
     Route: 042
     Dates: start: 20060412, end: 20060412
  4. BENADRYL [Concomitant]
     Indication: PREMEDICATION
     Route: 042
     Dates: start: 20060412, end: 20060412
  5. QUININE SULFATE [Concomitant]
  6. SENOKOT [Concomitant]
  7. ZOLOFT [Concomitant]
  8. ADVAIR DISKUS 100/50 [Concomitant]
     Route: 055
  9. TIMOLOL MALEATE [Concomitant]
  10. XALATAN [Concomitant]
     Route: 031

REACTIONS (1)
  - INFUSION RELATED REACTION [None]
